FAERS Safety Report 5796670-6 (Version None)
Quarter: 2008Q3

REPORT INFORMATION
  Report Type: 
  Country: None (occurrence: None)
  Receive Date: 20080701
  Receipt Date: 20080624
  Transmission Date: 20090109
  Serious: Yes (Hospitalization)
  Sender: FDA-Public Use
  Company Number: FR-JNJFOC-20080405687

PATIENT
  Age: 32 Year
  Sex: Female

DRUGS (8)
  1. RISPERDAL [Suspect]
     Route: 048
  2. RISPERDAL [Suspect]
     Indication: DRUG USE FOR UNKNOWN INDICATION
     Route: 048
  3. TERCIAN [Suspect]
     Route: 048
  4. TERCIAN [Suspect]
     Route: 048
  5. TERCIAN [Suspect]
     Route: 048
  6. TERCIAN [Suspect]
     Route: 048
  7. TERCIAN [Suspect]
     Route: 048
  8. TERCIAN [Suspect]
     Indication: DRUG USE FOR UNKNOWN INDICATION
     Route: 048

REACTIONS (3)
  - AGRANULOCYTOSIS [None]
  - LEUKOPENIA [None]
  - TREATMENT NONCOMPLIANCE [None]
